FAERS Safety Report 14137636 (Version 1)
Quarter: 2017Q4

REPORT INFORMATION
  Report Type: Report from Study
  Country: US (occurrence: US)
  Receive Date: 20171027
  Receipt Date: 20171027
  Transmission Date: 20180321
  Serious: Yes (Hospitalization)
  Sender: FDA-Public Use
  Company Number: US-GILEAD-2017-0301534

PATIENT
  Age: 69 Year
  Sex: Female

DRUGS (10)
  1. SENNA                              /00142201/ [Concomitant]
     Active Substance: SENNA LEAF
  2. KCL [Concomitant]
     Active Substance: POTASSIUM CHLORIDE
  3. COLACE [Concomitant]
     Active Substance: DOCUSATE SODIUM
  4. METOLAZONE. [Concomitant]
     Active Substance: METOLAZONE
  5. AMBRISENTAN [Suspect]
     Active Substance: AMBRISENTAN
     Indication: PULMONARY ARTERIAL HYPERTENSION
     Dosage: 10 MG, QD
     Route: 065
     Dates: start: 20140217
  6. SIMVASTATIN. [Concomitant]
     Active Substance: SIMVASTATIN
  7. FUROSEMIDE. [Concomitant]
     Active Substance: FUROSEMIDE
  8. IPRATROPIUM [Concomitant]
     Active Substance: IPRATROPIUM
  9. LANTUS [Concomitant]
     Active Substance: INSULIN GLARGINE
  10. CALCITRIOL. [Concomitant]
     Active Substance: CALCITRIOL

REACTIONS (3)
  - Ulcer haemorrhage [Not Recovered/Not Resolved]
  - Skin abrasion [Not Recovered/Not Resolved]
  - Fall [Not Recovered/Not Resolved]

NARRATIVE: CASE EVENT DATE: 20171016
